FAERS Safety Report 9725424 (Version 1)
Quarter: 2013Q4

REPORT INFORMATION
  Report Type: Spontaneous
  Country: US (occurrence: US)
  Receive Date: 20131203
  Receipt Date: 20131203
  Transmission Date: 20140711
  Serious: No
  Sender: FDA-Public Use
  Company Number: US-BIOGENIDEC-2013BI078387

PATIENT
  Age: 53 Year
  Sex: Female

DRUGS (11)
  1. TECFIDERA [Suspect]
     Indication: MULTIPLE SCLEROSIS
     Route: 048
     Dates: start: 20130802
  2. TECFIDERA [Suspect]
     Indication: MULTIPLE SCLEROSIS
     Route: 048
  3. AMPYRA [Concomitant]
  4. NUVIGIL [Concomitant]
  5. SERTRALINE [Concomitant]
  6. SIMVASTATIN [Concomitant]
  7. SYNTHROID [Concomitant]
  8. TIZANIDINE [Concomitant]
  9. ZETIA [Concomitant]
  10. CYMBALTA [Concomitant]
  11. CELEXA [Concomitant]

REACTIONS (3)
  - Pruritus generalised [Recovered/Resolved]
  - Erythema [Recovered/Resolved]
  - Pruritus [Unknown]
